FAERS Safety Report 4645423-0 (Version None)
Quarter: 2005Q2

REPORT INFORMATION
  Report Type: 
  Country: None (occurrence: None)
  Receive Date: 20050425
  Receipt Date: 20050407
  Transmission Date: 20051028
  Serious: Yes (Hospitalization)
  Sender: FDA-Public Use
  Company Number: DSA_60482_2005

PATIENT

DRUGS (1)
  1. DIHYDROERGOTAMINE MESYLATE [Suspect]
     Dosage: DF, PO
     Route: 048

REACTIONS (1)
  - PNEUMONIA [None]
